FAERS Safety Report 25090359 (Version 2)
Quarter: 2025Q2

REPORT INFORMATION
  Report Type: Spontaneous
  Country: JP (occurrence: JP)
  Receive Date: 20250318
  Receipt Date: 20250417
  Transmission Date: 20250717
  Serious: Yes (Other)
  Sender: ABBVIE
  Company Number: JP-ABBVIE-6175490

PATIENT
  Age: 14 Year
  Sex: Female
  Weight: 37 kg

DRUGS (6)
  1. SKYRIZI [Suspect]
     Active Substance: RISANKIZUMAB-RZAA
     Indication: Crohn^s disease
     Route: 058
     Dates: start: 2025
  2. Zinc acetate dihydrate [Concomitant]
     Indication: Hypozincaemia
     Dosage: FORM STRENGTH: 25 MILLIGRAM
     Route: 048
     Dates: start: 20230807
  3. ACETAMINOPHEN [Concomitant]
     Active Substance: ACETAMINOPHEN
     Indication: Headache
     Route: 048
     Dates: start: 20220608
  4. COLCHICINE [Concomitant]
     Active Substance: COLCHICINE
     Indication: Enterocolitis
     Dosage: FORM STRENGTH: 0.5 MILLIGRAM
     Route: 048
     Dates: start: 20230913
  5. ESOMEPRAZOLE MAGNESIUM [Concomitant]
     Active Substance: ESOMEPRAZOLE MAGNESIUM
     Indication: Gastritis prophylaxis
     Dosage: FORM STRENGTH: 10 MILLIGRAM
     Route: 048
     Dates: start: 20240703
  6. Clostridium butyricum [Concomitant]
     Indication: Crohn^s disease
     Route: 048
     Dates: start: 20220603

REACTIONS (3)
  - Hypophagia [Unknown]
  - Abdominal pain [Unknown]
  - Frequent bowel movements [Unknown]

NARRATIVE: CASE EVENT DATE: 20250301
